FAERS Safety Report 15786916 (Version 1)
Quarter: 2019Q1

REPORT INFORMATION
  Report Type: Report from Study
  Country: TR (occurrence: TR)
  Receive Date: 20190103
  Receipt Date: 20190103
  Transmission Date: 20190417
  Serious: Yes (Other)
  Sender: FDA-Public Use
  Company Number: TR-TEVA-2018-TR-993749

PATIENT
  Age: 68 Year

DRUGS (2)
  1. METHOTREXATE. [Suspect]
     Active Substance: METHOTREXATE
     Indication: RHEUMATOID ARTHRITIS
     Route: 048
  2. METHOTREXATE. [Suspect]
     Active Substance: METHOTREXATE
     Indication: RHEUMATOID ARTHRITIS
     Dosage: TOOK IN INCORRECT FREQUENCY
     Route: 058

REACTIONS (7)
  - Rash [Unknown]
  - Toxicity to various agents [Unknown]
  - Decreased appetite [Unknown]
  - Pancytopenia [Recovered/Resolved]
  - Fatigue [Unknown]
  - Mouth ulceration [Unknown]
  - Inappropriate schedule of product administration [Unknown]
